FAERS Safety Report 8446955-X (Version None)
Quarter: 2012Q2

REPORT INFORMATION
  Report Type: 
  Country: None (occurrence: None)
  Receive Date: 20120619
  Receipt Date: 20120605
  Transmission Date: 20120825
  Serious: Yes (Other)
  Sender: FDA-Public Use
  Company Number: ES-RANBAXY-2012RR-57164

PATIENT
  Age: 19 Year
  Sex: Female

DRUGS (2)
  1. ACETAMINOPHEN [Suspect]
     Indication: ALLERGY TEST
     Dosage: 500 MG, SINGLE
     Route: 048
  2. ASPIRIN [Concomitant]
     Indication: ALLERGY TEST
     Dosage: UNK
     Route: 048

REACTIONS (1)
  - BRONCHOSPASM [None]
